FAERS Safety Report 9237139 (Version 1)
Quarter: 2013Q1

REPORT INFORMATION
  Report Type: Spontaneous
  Country: US (occurrence: None)
  Receive Date: 20121031
  Receipt Date: 20121031
  Transmission Date: 20140127
  Serious: No
  Sender: FDA-Public Use
  Company Number: PHEH2012US0009948

PATIENT
  Age: 65 Year
  Sex: Female
  Weight: 104.3 kg

DRUGS (13)
  1. GILENYA [Suspect]
     Indication: MULTIPLE SCLEROSIS
     Route: 048
     Dates: start: 20120430
  2. PROVIGIL (MODAFINIL) [Concomitant]
  3. METHYLPHENIDATE (METHYLPHENIDATE) [Concomitant]
  4. BACLOFEN (BACLOFEN) [Concomitant]
  5. DIOVAN (VALSARTAN) [Concomitant]
  6. GABAPENTIN (GABAPENTIN) [Concomitant]
  7. VESICARE (SOLIFENACIN) [Concomitant]
  8. CITALOPRAM (CITALOPRAM) [Concomitant]
  9. TAMSULOSIN (TAMSULOSIN) [Concomitant]
  10. VITAMIN D (ERGOCALCIFEROL) [Concomitant]
  11. ASPIRIN (ACETYLSALICYLIC ACID) [Concomitant]
  12. ETODOLAC (ETODOLAC) [Concomitant]
  13. ANTIDEPRESSANTS (NO INGREDIENTS/SUBSTANCES) [Concomitant]

REACTIONS (3)
  - Amnesia [None]
  - Electrocardiogram abnormal [None]
  - Atrioventricular block first degree [None]
